FAERS Safety Report 8024621-2 (Version None)
Quarter: 2012Q1

REPORT INFORMATION
  Report Type: 
  Country: None (occurrence: None)
  Receive Date: 20120105
  Receipt Date: 20111223
  Transmission Date: 20120608
  Serious: Yes (Other)
  Sender: FDA-Public Use
  Company Number: FR-SANOFI-AVENTIS-2011SA084352

PATIENT
  Age: 66 Year
  Sex: Female

DRUGS (6)
  1. KETOPROFEN [Concomitant]
     Route: 048
     Dates: start: 20111108
  2. LOVENOX [Suspect]
     Indication: THROMBOSIS PROPHYLAXIS
     Route: 058
     Dates: start: 20111108, end: 20111112
  3. TRAMADOL HCL [Concomitant]
     Route: 048
     Dates: start: 20111108
  4. MORPHINE SULFATE [Concomitant]
     Route: 048
     Dates: start: 20111108
  5. ACETAMINOPHEN [Concomitant]
     Dosage: DOSE:10 MILLIGRAM(S)/MILLILITRE
     Route: 042
     Dates: start: 20111108
  6. RABEPRAZOLE SODIUM [Concomitant]
     Route: 048
     Dates: start: 20111108

REACTIONS (2)
  - PHLEBITIS [None]
  - DRUG INEFFECTIVE [None]
